FAERS Safety Report 11690909 (Version 4)
Quarter: 2017Q4

REPORT INFORMATION
  Report Type: Spontaneous
  Country: ES (occurrence: ES)
  Receive Date: 20151102
  Receipt Date: 20171027
  Transmission Date: 20180320
  Serious: Yes (Death)
  Sender: FDA-Public Use
  Company Number: ES-BRACCO-001318

PATIENT
  Age: 64 Year
  Sex: Female

DRUGS (6)
  1. LISINOPRIL. [Concomitant]
     Active Substance: LISINOPRIL
  2. TORASEMIDE [Concomitant]
     Active Substance: TORSEMIDE
  3. ACENOCOUMAROL [Concomitant]
     Active Substance: ACENOCOUMAROL
  4. MULTIHANCE [Suspect]
     Active Substance: GADOBENATE DIMEGLUMINE
     Indication: NUCLEAR MAGNETIC RESONANCE IMAGING HEART
     Route: 042
     Dates: start: 20151009, end: 20151009
  5. ATENOLOL. [Concomitant]
     Active Substance: ATENOLOL
  6. ROSUVASTATIN. [Concomitant]
     Active Substance: ROSUVASTATIN

REACTIONS (3)
  - Cardiac arrest [Fatal]
  - Anaphylactic reaction [Fatal]
  - Haemorrhagic diathesis [Fatal]

NARRATIVE: CASE EVENT DATE: 20151009
